FAERS Safety Report 8201378-3 (Version None)
Quarter: 2012Q1

REPORT INFORMATION
  Report Type: 
  Country: None (occurrence: None)
  Receive Date: 20120305
  Receipt Date: 20120224
  Transmission Date: 20120608
  Serious: Yes (Hospitalization)
  Sender: FDA-Public Use
  Company Number: 2009021606

PATIENT
  Sex: Female
  Weight: 59.8748 kg

DRUGS (5)
  1. LEVAQUIN [Concomitant]
  2. ZANTAC [Concomitant]
  3. VIVAGLOBIN [Suspect]
     Indication: PRIMARY IMMUNODEFICIENCY SYNDROME
     Dosage: (60 ML, 60 ML ONCE WEEKLY OVER 2 HOURS IN 4 SITES SUBCUTANEOUS)
     Route: 058
     Dates: start: 20090101
  4. SPIRIVA [Concomitant]
  5. SYMBICORT [Concomitant]

REACTIONS (3)
  - WEIGHT INCREASED [None]
  - DYSPHONIA [None]
  - DEEP VEIN THROMBOSIS [None]
